FAERS Safety Report 5193782-5 (Version None)
Quarter: 2006Q4

REPORT INFORMATION
  Report Type: 
  Country: None (occurrence: None)
  Receive Date: 20061221
  Receipt Date: 20061212
  Transmission Date: 20070319
  Serious: Yes (Death)
  Sender: FDA-Public Use
  Company Number: 2006US002209

PATIENT
  Age: 47 Year
  Sex: Male

DRUGS (13)
  1. PROGRAF [Suspect]
     Indication: PROPHYLAXIS AGAINST TRANSPLANT REJECTION
     Dosage: 0.5 MG, UID/QD, ORAL
     Route: 048
     Dates: start: 20060726
  2. MYCOPHENOLATE MOFETIL [Suspect]
     Indication: PROPHYLAXIS AGAINST TRANSPLANT REJECTION
     Dosage: 250 MG, BID, ORAL
     Route: 048
     Dates: start: 20060323
  3. SIROLIMUS                (SIROLIMUS) [Suspect]
     Indication: PROPHYLAXIS AGAINST TRANSPLANT REJECTION
     Dosage: 4 MG, TID, ORAL
     Route: 047
     Dates: start: 20060517, end: 20060724
  4. PREDNISONE TAB [Suspect]
     Indication: PROPHYLAXIS AGAINST TRANSPLANT REJECTION
     Dosage: 5 MG
     Dates: start: 20060323, end: 20060819
  5. DIFLUCAN [Concomitant]
  6. ROBAXIN [Concomitant]
  7. URSODIOL         (URSODEOXYCHOLIC ACID) [Concomitant]
  8. AMBIEN [Concomitant]
  9. PROTONIX [Concomitant]
  10. ZYVOX [Concomitant]
  11. BETAGAN [Concomitant]
  12. LOPRESSOR [Concomitant]
  13. LINEZOLID [Concomitant]

REACTIONS (10)
  - CYTOMEGALOVIRUS INFECTION [None]
  - HEPATIC ISCHAEMIA [None]
  - HEPATIC NECROSIS [None]
  - HEPATITIS C [None]
  - HYPOTENSION [None]
  - HYPOXIA [None]
  - PYREXIA [None]
  - REFUSAL OF TREATMENT BY RELATIVE [None]
  - TACHYPNOEA [None]
  - TRANSPLANT REJECTION [None]
